FAERS Safety Report 21957017 (Version 2)
Quarter: 2023Q1

REPORT INFORMATION
  Report Type: Report from Study
  Country: ZA (occurrence: ZA)
  Receive Date: 20230206
  Receipt Date: 20230224
  Transmission Date: 20230418
  Serious: Yes (Death)
  Sender: FDA-Public Use
  Company Number: ZA-BAYER-2023A013413

PATIENT
  Sex: Female

DRUGS (1)
  1. EYLEA [Suspect]
     Active Substance: AFLIBERCEPT
     Indication: Age-related macular degeneration
     Dosage: 1 DF, SOLUTION FOR INJECTION IN PRE-FILLED SYRINGE, STRENGTH: 40MG/ML
     Dates: start: 20220131, end: 20230201

REACTIONS (1)
  - Neoplasm malignant [Fatal]
